FAERS Safety Report 4384775-6 (Version None)
Quarter: 2004Q2

REPORT INFORMATION
  Report Type: 
  Country: None (occurrence: None)
  Receive Date: 20040625
  Receipt Date: 20040614
  Transmission Date: 20050107
  Serious: Yes (Death)
  Sender: FDA-Public Use
  Company Number: GB-AMGEN-US080516

PATIENT
  Age: 64 Year
  Sex: Male

DRUGS (5)
  1. ENBREL [Suspect]
     Indication: RHEUMATOID ARTHRITIS
     Dates: start: 20030529, end: 20040422
  2. FOSAMAX [Concomitant]
  3. PREDNISOLONE [Concomitant]
  4. CO-CODAMOL [Concomitant]
  5. OMEPRAZOLE [Concomitant]

REACTIONS (1)
  - METASTATIC NEOPLASM [None]
